FAERS Safety Report 6201965-8 (Version None)
Quarter: 2009Q2

REPORT INFORMATION
  Report Type: 
  Country: None (occurrence: None)
  Receive Date: 20090526
  Receipt Date: 20090515
  Transmission Date: 20091009
  Serious: Yes (Death, Hospitalization)
  Sender: FDA-Public Use
  Company Number: A0774405A

PATIENT
  Age: 51 Year
  Sex: Female
  Weight: 145.5 kg

DRUGS (4)
  1. AVANDIA [Suspect]
     Dosage: 2MG TWICE PER DAY
     Route: 048
     Dates: start: 20051130, end: 20061001
  2. AVANDAMET [Suspect]
     Route: 048
     Dates: start: 20031126, end: 20070107
  3. METFORMIN HCL [Concomitant]
  4. ZESTRIL [Concomitant]

REACTIONS (4)
  - CARDIAC FAILURE CONGESTIVE [None]
  - CEREBROVASCULAR ACCIDENT [None]
  - DEATH [None]
  - MYOCARDIAL INFARCTION [None]
